FAERS Safety Report 20369489 (Version 3)
Quarter: 2024Q3

REPORT INFORMATION
  Report Type: Spontaneous
  Country: JP (occurrence: JP)
  Receive Date: 20220124
  Receipt Date: 20240712
  Transmission Date: 20241017
  Serious: Yes (Hospitalization, Other)
  Sender: PIERRE FABRE MEDICAMENT
  Company Number: JP-PFM-2021-12228

PATIENT
  Age: 4 Month
  Sex: Female

DRUGS (4)
  1. PROPRANOLOL HYDROCHLORIDE [Suspect]
     Active Substance: PROPRANOLOL HYDROCHLORIDE
     Indication: Infantile haemangioma
     Dosage: 0.5 MG/KG, BID (2/DAY) (0.5 MG/KG/12 HOURS)
     Route: 048
     Dates: start: 20211020, end: 20211020
  2. PROPRANOLOL HYDROCHLORIDE [Suspect]
     Active Substance: PROPRANOLOL HYDROCHLORIDE
     Dosage: 1 MG/KG, BID (2/DAY) (1.0 MG/KG/12 HOURS)
     Route: 048
     Dates: start: 20211021, end: 20211021
  3. PROPRANOLOL HYDROCHLORIDE [Suspect]
     Active Substance: PROPRANOLOL HYDROCHLORIDE
     Dosage: 1.5 MG/KG, BID (2/DAY) (1.5 MG/KG/12 HOURS)
     Route: 048
     Dates: start: 20211022, end: 20211026
  4. PROPRANOLOL HYDROCHLORIDE [Suspect]
     Active Substance: PROPRANOLOL HYDROCHLORIDE
     Dosage: 1.5 MG/KG, BID (2/DAY) (1.5 MG/KG/12 HOURS
     Route: 048
     Dates: start: 20211125, end: 20211125

REACTIONS (3)
  - Meningitis viral [Recovered/Resolved]
  - Enterocolitis viral [Recovered/Resolved]
  - Vomiting [Recovered/Resolved]

NARRATIVE: CASE EVENT DATE: 20211025
